FAERS Safety Report 18808873 (Version 4)
Quarter: 2021Q1

REPORT INFORMATION
  Report Type: Spontaneous
  Country: JP (occurrence: JP)
  Receive Date: 20210129
  Receipt Date: 20210228
  Transmission Date: 20210419
  Serious: No
  Sender: FDA-Public Use
  Company Number: JP-JNJFOC-20210127761

PATIENT
  Age: 7 Decade
  Sex: Female
  Weight: 40 kg

DRUGS (1)
  1. SIMPONI [Suspect]
     Active Substance: GOLIMUMAB
     Indication: RHEUMATOID ARTHRITIS
     Dosage: 50.00 MG / 0.50 ML
     Route: 058
     Dates: start: 20210113, end: 20210113

REACTIONS (4)
  - Device deployment issue [Recovered/Resolved]
  - Administration site pain [Unknown]
  - Needle issue [Unknown]
  - Injury associated with device [Recovered/Resolved]

NARRATIVE: CASE EVENT DATE: 20210113
